FAERS Safety Report 13378311 (Version 1)
Quarter: 2017Q1

REPORT INFORMATION
  Report Type: Spontaneous
  Country: IN (occurrence: IN)
  Receive Date: 20170328
  Receipt Date: 20170328
  Transmission Date: 20170429
  Serious: Yes (Hospitalization)
  Sender: FDA-Public Use
  Company Number: IN-IPCA LABORATORIES LIMITED-IPC201703-000336

PATIENT
  Age: 46 Year
  Sex: Female
  Weight: 70 kg

DRUGS (11)
  1. PROPOFOL. [Concomitant]
     Active Substance: PROPOFOL
  2. ATENOLOL. [Suspect]
     Active Substance: ATENOLOL
  3. LOSARTAN. [Suspect]
     Active Substance: LOSARTAN
  4. NICARDIPINE [Suspect]
     Active Substance: NICARDIPINE
  5. FENTANYL. [Concomitant]
     Active Substance: FENTANYL
  6. VERCURONIUM [Concomitant]
     Route: 042
  7. MIDAZOLAM [Concomitant]
     Active Substance: MIDAZOLAM HYDROCHLORIDE
  8. ATROPINE. [Concomitant]
     Active Substance: ATROPINE
  9. PRAZOSIN [Suspect]
     Active Substance: PRAZOSIN
  10. CEFUROXIME. [Suspect]
     Active Substance: CEFUROXIME
  11. THYROXIN SODIUM [Concomitant]
     Active Substance: LEVOTHYROXINE SODIUM

REACTIONS (1)
  - Anaphylactic shock [Recovered/Resolved]
